FAERS Safety Report 15701449 (Version 2)
Quarter: 2018Q4

REPORT INFORMATION
  Report Type: Report from Study
  Country: None (occurrence: US)
  Receive Date: 20181207
  Receipt Date: 20181217
  Transmission Date: 20190205
  Serious: Yes (Hospitalization)
  Sender: FDA-Public Use
  Company Number: US-ABBVIE-18P-163-2580569-00

PATIENT
  Age: 11 Year
  Sex: Male
  Weight: 39.4 kg

DRUGS (3)
  1. ZOFRAN ODT [Concomitant]
     Active Substance: ONDANSETRON HYDROCHLORIDE
     Indication: GASTROENTERITIS
     Dosage: EVERY 6 HOURS AS NEEDED
     Route: 048
     Dates: start: 20170417
  2. METHOTREXATE. [Suspect]
     Active Substance: METHOTREXATE
     Indication: CROHN^S DISEASE
     Route: 048
     Dates: start: 20140522, end: 20171026
  3. HUMIRA [Suspect]
     Active Substance: ADALIMUMAB
     Indication: CROHN^S DISEASE
     Route: 058
     Dates: start: 20140301, end: 20171026

REACTIONS (4)
  - Anaemia [Not Recovered/Not Resolved]
  - Crohn^s disease [Recovered/Resolved]
  - Hypoxia [Recovered/Resolved]
  - Tonsillitis streptococcal [Recovered/Resolved]

NARRATIVE: CASE EVENT DATE: 20171022
